FAERS Safety Report 9305644 (Version 1)
Quarter: 2013Q2

REPORT INFORMATION
  Report Type: Spontaneous
  Country: US (occurrence: None)
  Receive Date: 20130522
  Receipt Date: 20130522
  Transmission Date: 20140414
  Serious: Yes (Life-Threatening)
  Sender: FDA-Public Use
  Company Number: None

PATIENT
  Age: 16 Year
  Sex: Female
  Weight: 83 kg

DRUGS (1)
  1. MIRALAX [Suspect]

REACTIONS (7)
  - Throat tightness [None]
  - Pruritus [None]
  - Dyspnoea [None]
  - Urticaria [None]
  - Wheezing [None]
  - Dyspnoea [None]
  - Hypotension [None]
